FAERS Safety Report 14687637 (Version 1)
Quarter: 2018Q1

REPORT INFORMATION
  Report Type: Spontaneous
  Country: US (occurrence: US)
  Receive Date: 20180328
  Receipt Date: 20180328
  Transmission Date: 20180509
  Serious: Yes (Hospitalization)
  Sender: FDA-Public Use
  Company Number: US-ACCORD-064757

PATIENT
  Age: 62 Year
  Sex: Male
  Weight: 83.91 kg

DRUGS (1)
  1. CAPECITABINE. [Suspect]
     Active Substance: CAPECITABINE
     Indication: COLON CANCER
     Dosage: STRENGTH: 500 MG?FREQUENCY: 4 PO BID (2 GRAMS BID)
     Route: 048

REACTIONS (3)
  - Arteriospasm coronary [Unknown]
  - Hypotension [Unknown]
  - Dizziness [Unknown]
